FAERS Safety Report 13430671 (Version 1)
Quarter: 2017Q2

REPORT INFORMATION
  Report Type: Spontaneous
  Country: US (occurrence: US)
  Receive Date: 20170412
  Receipt Date: 20170412
  Transmission Date: 20170830
  Serious: No
  Sender: FDA-Public Use
  Company Number: US-ENDO PHARMACEUTICALS INC-2016-004226

PATIENT
  Age: 17 Year
  Sex: Female
  Weight: 61.29 kg

DRUGS (3)
  1. EMOQUETTE [Suspect]
     Active Substance: DESOGESTREL\ETHINYL ESTRADIOL
     Indication: ACNE
     Route: 048
     Dates: start: 20160616
  2. FINACEA [Concomitant]
     Active Substance: AZELAIC ACID
     Indication: ACNE
  3. CLINDAMYCIN TOPICAL LOTION [Concomitant]
     Indication: ACNE

REACTIONS (2)
  - Off label use [Not Recovered/Not Resolved]
  - Menorrhagia [Recovered/Resolved]

NARRATIVE: CASE EVENT DATE: 201606
